FAERS Safety Report 14572214 (Version 3)
Quarter: 2021Q1

REPORT INFORMATION
  Report Type: Spontaneous
  Country: US (occurrence: US)
  Receive Date: 20180226
  Receipt Date: 20210112
  Transmission Date: 20210419
  Serious: Yes (Hospitalization)
  Sender: FDA-Public Use
  Company Number: US-JNJFOC-20180222365

PATIENT
  Age: 49 Year
  Sex: Female
  Weight: 72.7 kg

DRUGS (2)
  1. XARELTO [Suspect]
     Active Substance: RIVAROXABAN
     Indication: PULMONARY EMBOLISM
     Dosage: VARYING DOSES OF 15 MG AND 20 MG
     Route: 048
     Dates: start: 201402, end: 201602
  2. XARELTO [Suspect]
     Active Substance: RIVAROXABAN
     Dosage: VARYING DOSES OF 15 MG AND 20 MG
     Route: 048
     Dates: end: 201612

REACTIONS (1)
  - Vaginal haemorrhage [Unknown]

NARRATIVE: CASE EVENT DATE: 20160213
